FAERS Safety Report 5081414-6 (Version None)
Quarter: 2006Q3

REPORT INFORMATION
  Report Type: 
  Country: None (occurrence: None)
  Receive Date: 20060811
  Receipt Date: 20060731
  Transmission Date: 20061208
  Serious: Yes (Other)
  Sender: FDA-Public Use
  Company Number: 2006US-03149

PATIENT
  Age: 47 Year
  Sex: Female

DRUGS (10)
  1. ISOTRETINOIN [Suspect]
     Dosage: 40 MG
     Dates: start: 20060525, end: 20060728
  2. METFORMIN HYDROCHLORIDE [Concomitant]
  3. ACTOSE [Concomitant]
  4. LASIX [Concomitant]
  5. SPIRONOLACTONE [Concomitant]
  6. VYTORIN [Concomitant]
  7. GEMFIBROZIL [Concomitant]
  8. APERINOL [Concomitant]
  9. BENICAR [Concomitant]
  10. ALTACE [Concomitant]

REACTIONS (4)
  - ANXIETY [None]
  - DYSPNOEA [None]
  - SELF-INJURIOUS IDEATION [None]
  - SUICIDAL IDEATION [None]
